FAERS Safety Report 4346155-9 (Version None)
Quarter: 2004Q2

REPORT INFORMATION
  Report Type: 
  Country: None (occurrence: None)
  Receive Date: 20040426
  Receipt Date: 20030903
  Transmission Date: 20050107
  Serious: No
  Sender: FDA-Public Use
  Company Number: US-GLAXOSMITHKLINE-A0424574A

PATIENT
  Sex: Male

DRUGS (4)
  1. ZOFRAN [Suspect]
     Indication: VOMITING
     Route: 048
     Dates: start: 20030701
  2. IRINOTECAN [Concomitant]
     Indication: COLON CANCER
  3. FLUOROURACIL [Concomitant]
     Indication: COLON CANCER
  4. LEUCOVORIN CALCIUM [Concomitant]
     Indication: COLON CANCER

REACTIONS (1)
  - DRUG INEFFECTIVE [None]
